FAERS Safety Report 23880750 (Version 3)
Quarter: 2024Q3

REPORT INFORMATION
  Report Type: Spontaneous
  Country: US (occurrence: US)
  Receive Date: 20240521
  Receipt Date: 20240805
  Transmission Date: 20241017
  Serious: Yes (Other)
  Sender: GLAXOSMITHKLINE
  Company Number: US-GSKCCFUS-Case-02010701_AE-111608

PATIENT
  Sex: Male

DRUGS (1)
  1. TRELEGY ELLIPTA [Suspect]
     Active Substance: FLUTICASONE FUROATE\UMECLIDINIUM BROMIDE\VILANTEROL TRIFENATATE
     Indication: Product used for unknown indication
     Dosage: 1 PUFF(S), QD, (100/62.5/25 MCG)
     Route: 055

REACTIONS (4)
  - Pneumonia [Recovering/Resolving]
  - Dyspnoea [Unknown]
  - Wrong technique in device usage process [Not Recovered/Not Resolved]
  - Product complaint [Unknown]
